FAERS Safety Report 6243960-9 (Version None)
Quarter: 2009Q2

REPORT INFORMATION
  Report Type: 
  Country: None (occurrence: None)
  Receive Date: 20090623
  Receipt Date: 20090615
  Transmission Date: 20091009
  Serious: Yes (Other)
  Sender: FDA-Public Use
  Company Number: DSA_33728_2009

PATIENT
  Sex: Male

DRUGS (9)
  1. XENAZINE [Suspect]
     Indication: HUNTINGTON'S CHOREA
     Dosage: 12.5 MG,
     Dates: start: 20090401
  2. PAROXETINE HCL [Concomitant]
  3. OLANZAPINE [Concomitant]
  4. LISINOPRIL AND HYDROCHLOROTHIAZIDE [Concomitant]
  5. LORATADINE [Concomitant]
  6. M.V.I. [Concomitant]
  7. VITAMIN E [Concomitant]
  8. COQ10 [Concomitant]
  9. OMEPRAZOLE [Concomitant]

REACTIONS (13)
  - ABDOMINAL PAIN UPPER [None]
  - DEHYDRATION [None]
  - DISEASE PROGRESSION [None]
  - DROOLING [None]
  - EATING DISORDER [None]
  - FALL [None]
  - FLUID INTAKE REDUCED [None]
  - GAIT DISTURBANCE [None]
  - GASTRIC DISORDER [None]
  - HUNTINGTON'S CHOREA [None]
  - HYPOTENSION [None]
  - RASH [None]
  - SKIN INFECTION [None]
